FAERS Safety Report 5586508-4 (Version None)
Quarter: 2007Q4

REPORT INFORMATION
  Report Type: 
  Country: None (occurrence: None)
  Receive Date: 20071205
  Receipt Date: 20070521
  Transmission Date: 20080405
  Serious: Yes (Other)
  Sender: FDA-Public Use
  Company Number: HQWYE310222MAY07

PATIENT
  Age: 63 Year
  Sex: Female

DRUGS (1)
  1. EFFEXOR XR [Suspect]
     Dosage: 37.5 MG 1X PER 1 DAY, ORAL
     Route: 048
     Dates: start: 20070515, end: 20070518

REACTIONS (6)
  - CLUMSINESS [None]
  - DYSARTHRIA [None]
  - FATIGUE [None]
  - HEART RATE INCREASED [None]
  - LIP SWELLING [None]
  - PALPITATIONS [None]
